FAERS Safety Report 6285690-3 (Version None)
Quarter: 2009Q3

REPORT INFORMATION
  Report Type: 
  Country: None (occurrence: None)
  Receive Date: 20090724
  Receipt Date: 20090713
  Transmission Date: 20100115
  Serious: Yes (Hospitalization)
  Sender: FDA-Public Use
  Company Number: 237502K09USA

PATIENT
  Age: 43 Year
  Sex: Female
  Weight: 123 kg

DRUGS (8)
  1. REBIF [Suspect]
     Indication: MULTIPLE SCLEROSIS
     Dosage: 44 MCG, 3 IN 1 WEEKS, SUBCUTANEOUS, 22 MCG, 3 IN 1 WEEKS, SUBCUTANEOUS
     Route: 058
     Dates: start: 20090604, end: 20090629
  2. REBIF [Suspect]
     Indication: MULTIPLE SCLEROSIS
     Dosage: 44 MCG, 3 IN 1 WEEKS, SUBCUTANEOUS, 22 MCG, 3 IN 1 WEEKS, SUBCUTANEOUS
     Route: 058
     Dates: start: 20090701
  3. ZOCOR (ZOCOR CARDIO ASS) [Concomitant]
  4. PERCOCET [Concomitant]
  5. LEVOTHYROXINE (LEVOTHYEROXINE) [Concomitant]
  6. ALEVE [Concomitant]
  7. DOXYCYCLINE (DOXYCYCLINE) [Concomitant]
  8. LAMICTAL [Concomitant]

REACTIONS (7)
  - CHILLS [None]
  - FEELING HOT [None]
  - INTERVERTEBRAL DISC PROTRUSION [None]
  - NAUSEA [None]
  - PAIN [None]
  - PAIN OF SKIN [None]
  - SCIATIC NERVE INJURY [None]
